FAERS Safety Report 7401835-3 (Version None)
Quarter: 2011Q2

REPORT INFORMATION
  Report Type: 
  Country: None (occurrence: None)
  Receive Date: 20110408
  Receipt Date: 20110222
  Transmission Date: 20111010
  Serious: Yes (Other)
  Sender: FDA-Public Use
  Company Number: US-BAYER-201022353NA

PATIENT
  Sex: Female
  Weight: 66 kg

DRUGS (9)
  1. TOPROL-XL [Concomitant]
     Indication: HYPERTENSION
     Dosage: 50 MG, UNK
     Route: 048
  2. FIORICET [Concomitant]
  3. LORTAB [Concomitant]
  4. YASMIN [Suspect]
     Indication: DYSMENORRHOEA
     Route: 048
     Dates: start: 20040401, end: 20090401
  5. IBUPROFEN [Concomitant]
     Dates: start: 20040101
  6. NEXIUM [Concomitant]
  7. UNCODEABLE ^UNCLASSIFIABLE^ [Concomitant]
  8. YASMIN [Suspect]
     Indication: CONTRACEPTION
     Route: 048
     Dates: start: 20040401, end: 20090415
  9. CYCLOBENZAPRINE [Concomitant]
     Route: 048
     Dates: start: 20060331

REACTIONS (6)
  - CHOLELITHIASIS [None]
  - ACNE [None]
  - ABDOMINAL PAIN UPPER [None]
  - HEADACHE [None]
  - BILIARY COLIC [None]
  - CHOLECYSTITIS CHRONIC [None]
